FAERS Safety Report 14272264 (Version 1)
Quarter: 2017Q4

REPORT INFORMATION
  Report Type: Spontaneous
  Country: US (occurrence: None)
  Receive Date: 20171211
  Receipt Date: 20171211
  Transmission Date: 20180321
  Serious: Yes (Hospitalization)
  Sender: FDA-Public Use
  Company Number: None

PATIENT
  Age: 81 Year
  Sex: Female

DRUGS (1)
  1. REVLIMID [Suspect]
     Active Substance: LENALIDOMIDE
     Indication: PLASMA CELL MYELOMA
     Dosage: 15MG DAILY X 21D/28D ORAL
     Route: 048
     Dates: start: 201607, end: 201702

REACTIONS (5)
  - Abdominal pain [None]
  - Compression fracture [None]
  - Pulmonary embolism [None]
  - Immobile [None]
  - Deep vein thrombosis [None]

NARRATIVE: CASE EVENT DATE: 20171110
